FAERS Safety Report 7323134-0 (Version None)
Quarter: 2011Q1

REPORT INFORMATION
  Report Type: 
  Country: None (occurrence: None)
  Receive Date: 20110301
  Receipt Date: 20110222
  Transmission Date: 20110831
  Serious: Yes (Death)
  Sender: FDA-Public Use
  Company Number: US-JNJFOC-20110207471

PATIENT

DRUGS (2)
  1. CARBOPLATIN [Suspect]
     Indication: BREAST CANCER METASTATIC
     Dosage: AUC = 5 ON DAY 1 OF EACH 28 DAY CYCLE
     Route: 065
  2. DOXORUBICIN HCL [Suspect]
     Indication: BREAST CANCER METASTATIC
     Dosage: ON DAY 1 OF EACH 28 DAY CYCLE
     Route: 042

REACTIONS (1)
  - CARDIAC FAILURE CONGESTIVE [None]
